FAERS Safety Report 5143287-2 (Version None)
Quarter: 2006Q4

REPORT INFORMATION
  Report Type: 
  Country: None (occurrence: None)
  Receive Date: 20061103
  Receipt Date: 20061027
  Transmission Date: 20070319
  Serious: Yes (Hospitalization)
  Sender: FDA-Public Use
  Company Number: 2006UW20656

PATIENT
  Age: 56 Year
  Sex: Female
  Weight: 66.4 kg

DRUGS (2)
  1. FASLODEX [Suspect]
     Indication: BREAST CANCER
     Route: 030
     Dates: start: 20060705, end: 20060830
  2. TIPIFARNIB [Interacting]
     Indication: BREAST CANCER
     Route: 048
     Dates: start: 20060705, end: 20060920

REACTIONS (6)
  - COLLAPSE OF LUNG [None]
  - DEEP VEIN THROMBOSIS [None]
  - DISEASE PROGRESSION [None]
  - DYSPNOEA [None]
  - MALIGNANT NEOPLASM PROGRESSION [None]
  - PLEURAL EFFUSION [None]
